FAERS Safety Report 9522597 (Version 1)
Quarter: 2013Q3

REPORT INFORMATION
  Report Type: Spontaneous
  Country: US (occurrence: US)
  Receive Date: 20130913
  Receipt Date: 20130913
  Transmission Date: 20140515
  Serious: No
  Sender: FDA-Public Use
  Company Number: US-TEVA-432467USA

PATIENT
  Age: 15 Year
  Sex: Female
  Weight: 59.02 kg

DRUGS (2)
  1. PLAN B [Suspect]
     Indication: POST COITAL CONTRACEPTION
     Dosage: 1.5 MILLIGRAM DAILY;
     Route: 048
     Dates: start: 20130909, end: 20130909
  2. LUTERA [Concomitant]

REACTIONS (1)
  - Expired drug administered [Unknown]
